FAERS Safety Report 7290503-7 (Version None)
Quarter: 2011Q1

REPORT INFORMATION
  Report Type: 
  Country: None (occurrence: None)
  Receive Date: 20110214
  Receipt Date: 20110208
  Transmission Date: 20110831
  Serious: No
  Sender: FDA-Public Use
  Company Number: US-PFIZER INC-2011028241

PATIENT
  Sex: Female
  Weight: 53.968 kg

DRUGS (8)
  1. SIMVASTATIN/NIACIN [Suspect]
     Indication: LOW DENSITY LIPOPROTEIN INCREASED
     Dosage: 1000MG/20 MG
     Dates: start: 20101001, end: 20101201
  2. LIPITOR [Suspect]
     Dosage: UNK
  3. OLMESARTAN MEDOXOMIL [Concomitant]
     Indication: HYPERTENSION
     Dosage: UNK
  4. ACETYLSALICYLIC ACID [Concomitant]
     Dosage: 81 MG, UNK
  5. PANTOPRAZOLE SODIUM [Concomitant]
     Indication: GASTROOESOPHAGEAL REFLUX DISEASE
     Dosage: UNK
  6. LORAZEPAM [Concomitant]
     Indication: INSOMNIA
     Dosage: UNK
  7. SIMVASTATIN/NIACIN [Suspect]
     Dosage: 1000MG/40MG
     Dates: start: 20101201
  8. CARVEDILOL [Concomitant]
     Indication: TACHYCARDIA
     Dosage: UNK

REACTIONS (2)
  - VISION BLURRED [None]
  - DRUG INEFFECTIVE [None]
